FAERS Safety Report 6516676-9 (Version None)
Quarter: 2009Q4

REPORT INFORMATION
  Report Type: 
  Country: None (occurrence: None)
  Receive Date: 20091223
  Receipt Date: 20091123
  Transmission Date: 20100525
  Serious: No
  Sender: FDA-Public Use
  Company Number: US-BAYER-200917262BCC

PATIENT
  Age: 38 Year
  Sex: Female
  Weight: 86 kg

DRUGS (2)
  1. MIDOL [Suspect]
     Indication: DYSMENORRHOEA
     Dosage: TOTAL DAILY DOSE: 1320 MG  UNIT DOSE: 220 MG
     Route: 048
     Dates: start: 20091121, end: 20091123
  2. MIDOL [Suspect]
     Indication: DYSMENORRHOEA
     Dosage: TOTAL DAILY DOSE: 6 DF
     Route: 048
     Dates: end: 20091120

REACTIONS (4)
  - BACK PAIN [None]
  - DYSMENORRHOEA [None]
  - MENORRHAGIA [None]
  - MENSTRUAL DISORDER [None]
